FAERS Safety Report 10268965 (Version 1)
Quarter: 2014Q2

REPORT INFORMATION
  Report Type: Spontaneous
  Country: GB (occurrence: GB)
  Receive Date: 20140630
  Receipt Date: 20140630
  Transmission Date: 20141212
  Serious: Yes (Disabling)
  Sender: FDA-Public Use
  Company Number: GB-WATSON-2014-13971

PATIENT
  Age: 65 Year
  Sex: Male
  Weight: 73 kg

DRUGS (5)
  1. LEVOFLOXACIN [Suspect]
     Indication: LOWER RESPIRATORY TRACT INFECTION
     Dosage: 500 MG, BID. 1000 MILLIGRAM DAILY;
     Route: 048
     Dates: start: 20140427, end: 20140503
  2. AMITRIPTYLINE [Concomitant]
     Indication: PRODUCT USED FOR UNKNOWN INDICATION
     Dosage: 20 MG, QPM. 2X10 MG
     Route: 048
     Dates: start: 201206
  3. CODEINE [Concomitant]
     Indication: PRODUCT USED FOR UNKNOWN INDICATION
     Dosage: 30 MG, PRN
     Route: 048
     Dates: start: 201308
  4. LANSOPRAZOLE [Concomitant]
     Indication: PRODUCT USED FOR UNKNOWN INDICATION
     Dosage: 30 MG, DAILY
     Route: 048
     Dates: start: 20120101
  5. PREDNISOLONE [Concomitant]
     Indication: PRODUCT USED FOR UNKNOWN INDICATION
     Dosage: 50 MG, DAILY
     Route: 048
     Dates: start: 20130510

REACTIONS (3)
  - Tendonitis [Not Recovered/Not Resolved]
  - Tendon pain [Not Recovered/Not Resolved]
  - Gait disturbance [Unknown]
